FAERS Safety Report 4661834-1 (Version None)
Quarter: 2005Q2

REPORT INFORMATION
  Report Type: 
  Country: None (occurrence: None)
  Receive Date: 20050513
  Receipt Date: 20050401
  Transmission Date: 20051028
  Serious: Yes (Hospitalization)
  Sender: FDA-Public Use
  Company Number: UA-BRISTOL-MYERS SQUIBB COMPANY-12918884

PATIENT
  Age: 65 Year
  Sex: Male

DRUGS (3)
  1. CETUXIMAB [Suspect]
     Indication: NON-SMALL CELL LUNG CANCER
     Dosage: MOST RECENT TX ON 08-FEB-05. DOSE ON 15-FEB-05 WAS DELAYED.
     Route: 042
     Dates: start: 20050201
  2. CISPLATIN [Suspect]
     Indication: NON-SMALL CELL LUNG CANCER
     Dosage: PT ONLY REC'D ONE DOSE PRIOR TO EVENT. ON 22-FEB-05, DOSE DELAYED.
     Route: 042
     Dates: start: 20050201
  3. VINORELBINE TARTRATE [Suspect]
     Indication: NON-SMALL CELL LUNG CANCER
     Dosage: MOST RECENT TX ON 08-FEB-05.  PT HAD REC'D 2 INFUSIONS TO DATE. ON 22-FEB-05, DOSE DELAYED.
     Route: 042
     Dates: start: 20050201

REACTIONS (1)
  - PNEUMONIA [None]
